FAERS Safety Report 25069692 (Version 1)
Quarter: 2025Q1

REPORT INFORMATION
  Report Type: Other
  Country: CA (occurrence: CA)
  Receive Date: 20250312
  Receipt Date: 20250312
  Transmission Date: 20250409
  Serious: Yes (Hospitalization, Other)
  Sender: APOTEX
  Company Number: CA-APOTEX-2025AP002961

PATIENT
  Age: 15 Year
  Sex: Male
  Weight: 33 kg

DRUGS (2)
  1. ZOLEDRONIC ACID [Suspect]
     Active Substance: ZOLEDRONIC ACID
     Indication: Osteoporosis
     Route: 065
  2. DEFLAZACORT [Concomitant]
     Active Substance: DEFLAZACORT
     Indication: Product used for unknown indication
     Route: 065

REACTIONS (4)
  - Anal abscess [Not Recovered/Not Resolved]
  - Anal fistula [Not Recovered/Not Resolved]
  - Crohn^s disease [Not Recovered/Not Resolved]
  - Osteonecrosis of jaw [Not Recovered/Not Resolved]
